FAERS Safety Report 13707507 (Version 1)
Quarter: 2017Q2

REPORT INFORMATION
  Report Type: Report from Study
  Country: None (occurrence: US)
  Receive Date: 20170630
  Receipt Date: 20170630
  Transmission Date: 20170830
  Serious: No
  Sender: FDA-Public Use
  Company Number: US-IPSEN BIOPHARMACEUTICALS, INC.-2014-1662

PATIENT
  Sex: Male

DRUGS (1)
  1. SOMATULINE UNSPECIFIED [Suspect]
     Active Substance: LANREOTIDE ACETATE
     Indication: ACROMEGALY
     Dosage: NOT REPORTED
     Route: 065
     Dates: start: 20110719, end: 201311

REACTIONS (4)
  - Diarrhoea [None]
  - Malaise [Unknown]
  - Headache [None]
  - Fatigue [None]
